FAERS Safety Report 7266790-8 (Version None)
Quarter: 2011Q1

REPORT INFORMATION
  Report Type: 
  Country: None (occurrence: None)
  Receive Date: 20110201
  Receipt Date: 20110124
  Transmission Date: 20110831
  Serious: Yes (Other)
  Sender: FDA-Public Use
  Company Number: US-US-EMD SERONO, INC.-230581M09USA

PATIENT
  Sex: Female

DRUGS (3)
  1. SULFA [Suspect]
     Indication: UPPER RESPIRATORY TRACT INFECTION
     Route: 065
     Dates: start: 20090901, end: 20090901
  2. TYLENOL-500 [Concomitant]
     Indication: PREMEDICATION
     Route: 065
  3. REBIF [Suspect]
     Indication: MULTIPLE SCLEROSIS
     Route: 058
     Dates: start: 20070822

REACTIONS (6)
  - SKIN INFECTION [None]
  - MIGRAINE [None]
  - HYPERSENSITIVITY [None]
  - PRECANCEROUS SKIN LESION [None]
  - UPPER RESPIRATORY TRACT INFECTION [None]
  - INJECTION SITE REACTION [None]
